FAERS Safety Report 18228353 (Version 2)
Quarter: 2020Q3

REPORT INFORMATION
  Report Type: Spontaneous
  Country: US (occurrence: US)
  Receive Date: 20200903
  Receipt Date: 20200916
  Transmission Date: 20201103
  Serious: No
  Sender: FDA-Public Use
  Company Number: US-CELGENEUS-USA-20200800408

PATIENT
  Age: 19 Year
  Sex: Male
  Weight: 46.6 kg

DRUGS (7)
  1. SEPTRA DS [Concomitant]
     Active Substance: SULFAMETHOXAZOLE\TRIMETHOPRIM
     Indication: ANTIVIRAL PROPHYLAXIS
     Dosage: 1 DOSAGE FORMS, FRIDAY, SATURDAY, SUNDAY
     Route: 048
     Dates: start: 201806
  2. THALOMID [Suspect]
     Active Substance: THALIDOMIDE
     Indication: BONE CANCER
     Dosage: 150 MILLIGRAM
     Route: 048
     Dates: start: 202007, end: 20200729
  3. THALOMID [Suspect]
     Active Substance: THALIDOMIDE
     Indication: OFF LABEL USE
  4. THALOMID [Suspect]
     Active Substance: THALIDOMIDE
     Indication: OSTEOSARCOMA RECURRENT
     Dosage: 100 MILLIGRAM
     Route: 048
     Dates: start: 20200701
  5. CELEBREX [Concomitant]
     Active Substance: CELECOXIB
     Indication: CHEMOTHERAPY
     Dosage: 400 MILLIGRAM
     Route: 048
     Dates: start: 20200701, end: 20200729
  6. CYCLOPHOSPHAMIDE. [Suspect]
     Active Substance: CYCLOPHOSPHAMIDE
     Indication: PRODUCT USED FOR UNKNOWN INDICATION
     Dosage: 100 MILLIGRAM
     Route: 048
     Dates: start: 20200721, end: 20200729
  7. ETOPOSIDE. [Suspect]
     Active Substance: ETOPOSIDE
     Indication: PRODUCT USED FOR UNKNOWN INDICATION
     Dosage: 50 MILLIGRAM
     Route: 065
     Dates: start: 20200701, end: 20200721

REACTIONS (2)
  - Herpes zoster [Recovered/Resolved with Sequelae]
  - Post herpetic neuralgia [Not Recovered/Not Resolved]

NARRATIVE: CASE EVENT DATE: 20200721
